FAERS Safety Report 23958206 (Version 2)
Quarter: 2025Q2

REPORT INFORMATION
  Report Type: Spontaneous
  Country: US (occurrence: None)
  Receive Date: 20240610
  Receipt Date: 20250515
  Transmission Date: 20250717
  Serious: No
  Sender: INCYTE
  Company Number: US-INCYTE CORPORATION-2024IN005682

PATIENT
  Age: 67 Year

DRUGS (1)
  1. OPZELURA [Suspect]
     Active Substance: RUXOLITINIB PHOSPHATE
     Indication: Pruritus
     Dosage: UNK, BID
     Route: 065

REACTIONS (2)
  - Off label use [Unknown]
  - Product physical issue [Unknown]
